FAERS Safety Report 13363440 (Version 5)
Quarter: 2018Q4

REPORT INFORMATION
  Report Type: Spontaneous
  Country: US (occurrence: US)
  Receive Date: 20170323
  Receipt Date: 20181113
  Transmission Date: 20190204
  Serious: No
  Sender: FDA-Public Use
  Company Number: US-ASTRAZENECA-2017SE29449

PATIENT
  Age: 24329 Day
  Sex: Female
  Weight: 108.9 kg

DRUGS (7)
  1. BYDUREON [Suspect]
     Active Substance: EXENATIDE
     Indication: DIABETES MELLITUS
     Route: 058
     Dates: start: 2017
  2. BYDUREON BCISE [Suspect]
     Active Substance: EXENATIDE
     Route: 058
  3. XARELTO [Concomitant]
     Active Substance: RIVAROXABAN
  4. INVOKANA [Concomitant]
     Active Substance: CANAGLIFLOZIN
     Route: 048
  5. GLYBURIDE. [Concomitant]
     Active Substance: GLYBURIDE
     Route: 048
  6. OSTEOCAL [Concomitant]
  7. GLIMEPIRIDE. [Concomitant]
     Active Substance: GLIMEPIRIDE

REACTIONS (20)
  - Dehydration [Unknown]
  - Dizziness [Unknown]
  - Product preparation issue [Unknown]
  - Skin disorder [Unknown]
  - Syncope [Unknown]
  - Intentional product use issue [Unknown]
  - Cystitis [Not Recovered/Not Resolved]
  - Injection site extravasation [Unknown]
  - Intentional product misuse [Unknown]
  - Injection site haemorrhage [Unknown]
  - Device leakage [Unknown]
  - Blood pressure decreased [Unknown]
  - Pain [Unknown]
  - Fall [Unknown]
  - Peripheral swelling [Unknown]
  - Fatigue [Unknown]
  - Oedema [Unknown]
  - Blood glucose decreased [Unknown]
  - Incorrect dose administered by device [Unknown]
  - Device issue [Unknown]

NARRATIVE: CASE EVENT DATE: 20170322
